FAERS Safety Report 16019391 (Version 1)
Quarter: 2019Q1

REPORT INFORMATION
  Report Type: Spontaneous
  Country: PL (occurrence: PL)
  Receive Date: 20190228
  Receipt Date: 20190228
  Transmission Date: 20190418
  Serious: Yes (Death, Hospitalization)
  Sender: FDA-Public Use
  Company Number: PL-PURDUE PHARMA-GBR-2019-0064450

PATIENT
  Age: 39 Year
  Sex: Male

DRUGS (4)
  1. MORPHINE SULFATE. [Suspect]
     Active Substance: MORPHINE SULFATE
     Indication: ANALGESIC THERAPY
     Dosage: 200 MG, DAILY
     Route: 048
  2. BUPIVACAINE. [Concomitant]
     Active Substance: BUPIVACAINE
     Indication: ANALGESIC THERAPY
     Dosage: UNK
  3. CLONIDINE                          /00171102/ [Concomitant]
     Active Substance: CLONIDINE
     Indication: ANALGESIC THERAPY
  4. NON-PMN MORPHINE SULFATE [Suspect]
     Active Substance: MORPHINE SULFATE
     Indication: ANALGESIC THERAPY
     Dosage: 1150 MG, DAILY
     Route: 037

REACTIONS (3)
  - Malignant neoplasm progression [Fatal]
  - Drug ineffective [Unknown]
  - Hospitalisation [Unknown]
